FAERS Safety Report 15331294 (Version 3)
Quarter: 2018Q3

REPORT INFORMATION
  Report Type: Report from Study
  Country: US (occurrence: US)
  Receive Date: 20180829
  Receipt Date: 20180913
  Transmission Date: 20181010
  Serious: Yes (Hospitalization, Other)
  Sender: FDA-Public Use
  Company Number: US-BEH-2018094129

PATIENT
  Age: 60 Year
  Sex: Female

DRUGS (1)
  1. HAEGARDA [Suspect]
     Active Substance: HUMAN C1-ESTERASE INHIBITOR
     Indication: PROPHYLAXIS
     Dosage: 5000 IU, UNK
     Route: 065

REACTIONS (5)
  - Infection [Unknown]
  - Drug interaction [Unknown]
  - Catheter site erythema [Unknown]
  - Malaise [Unknown]
  - Device related infection [Unknown]

NARRATIVE: CASE EVENT DATE: 201805
